FAERS Safety Report 7913489-8 (Version None)
Quarter: 2011Q4

REPORT INFORMATION
  Report Type: 
  Country: None (occurrence: None)
  Receive Date: 20111115
  Receipt Date: 20111104
  Transmission Date: 20120403
  Serious: Yes (Other)
  Sender: FDA-Public Use
  Company Number: TR-RANBAXY-2011RR-50288

PATIENT
  Age: 5 Year
  Sex: Male

DRUGS (10)
  1. RISPERIDONE [Concomitant]
     Dosage: 0.25 MG/ZI
     Route: 065
  2. RISPERIDONE [Concomitant]
  3. RISPERIDONE [Suspect]
     Indication: AUTISM
  4. RISPERIDONE [Suspect]
     Dosage: 0.5 MG, UNK
     Route: 065
  5. RISPERIDONE [Concomitant]
     Dosage: 0.25 MG/DAY
  6. RISPERIDONE [Suspect]
     Indication: ABNORMAL BEHAVIOUR
     Dosage: 0.25 MG/DAY
  7. RISPERIDONE [Concomitant]
     Dosage: 0.5 MG/ZI, UNK
  8. RISPERIDONE [Concomitant]
  9. RISPERIDONE [Suspect]
  10. RISPERIDONE [Concomitant]

REACTIONS (1)
  - HEPATIC FUNCTION ABNORMAL [None]
